FAERS Safety Report 18220137 (Version 2)
Quarter: 2020Q3

REPORT INFORMATION
  Report Type: Spontaneous
  Country: US (occurrence: US)
  Receive Date: 20200902
  Receipt Date: 20200923
  Transmission Date: 20201103
  Serious: Yes (Other)
  Sender: FDA-Public Use
  Company Number: US-AUROBINDO-AUR-APL-2020-046421

PATIENT

DRUGS (1)
  1. MELATONIN LIQUID 1MG PER 4 ML DIETARY SUPPLEMENT [Suspect]
     Active Substance: MELATONIN
     Indication: PRODUCT USED FOR UNKNOWN INDICATION
     Dosage: 1 GTT DROPS (TOOK 1 DROPPER)
     Route: 065

REACTIONS (1)
  - Hallucination [Unknown]
